FAERS Safety Report 8284208-3 (Version None)
Quarter: 2012Q2

REPORT INFORMATION
  Report Type: 
  Country: None (occurrence: None)
  Receive Date: 20120413
  Receipt Date: 20110610
  Transmission Date: 20120825
  Serious: No
  Sender: FDA-Public Use
  Company Number: US-ASTRAZENECA-2010SE25732

PATIENT
  Age: 73 Year
  Sex: Female

DRUGS (12)
  1. NEXIUM [Suspect]
     Route: 048
  2. DETROL LA [Concomitant]
  3. CALCIFEROL [Concomitant]
  4. SINGULAIR [Concomitant]
  5. PREMARIN [Concomitant]
  6. PROVENTIL [Concomitant]
  7. VENTOLIN [Concomitant]
  8. ASPIRIN [Concomitant]
  9. CLARITIN-D [Concomitant]
  10. NEXIUM [Suspect]
     Route: 048
     Dates: start: 20100520
  11. FLONASE [Concomitant]
  12. COZAAR [Concomitant]

REACTIONS (5)
  - RESPIRATORY TRACT INFECTION [None]
  - ADVERSE EVENT [None]
  - DYSPHONIA [None]
  - MALAISE [None]
  - OESOPHAGEAL DISORDER [None]
